FAERS Safety Report 5491354-6 (Version None)
Quarter: 2007Q4

REPORT INFORMATION
  Report Type: 
  Country: None (occurrence: None)
  Receive Date: 20071017
  Receipt Date: 20071001
  Transmission Date: 20080405
  Serious: Yes (Hospitalization)
  Sender: FDA-Public Use
  Company Number: 8027330

PATIENT
  Age: 65 Year
  Sex: Female

DRUGS (6)
  1. KEPPRA [Suspect]
     Indication: EPILEPSY
     Dosage: 1000 MG 2/D PO
     Route: 048
     Dates: start: 20010101
  2. TEGRETOL [Suspect]
     Indication: EPILEPSY
     Dosage: 400 MG 3/D PO
     Route: 048
     Dates: start: 19900101
  3. PREVENCOR /01326102/ [Suspect]
     Indication: HYPERCHOLESTEROLAEMIA
     Dosage: 20 MG 1/D PO
     Route: 048
     Dates: start: 19970101
  4. ADALAT [Suspect]
     Indication: CREST SYNDROME
     Dosage: 20 MG 2/D PO
     Route: 048
     Dates: start: 20020101
  5. ZONEGRAN [Suspect]
     Indication: EPILEPSY
     Dosage: 150 MG 2/D PO
     Route: 048
     Dates: start: 20070312, end: 20070614
  6. COLCHICINE HOUDE. MFR: NOT SPECIFIED [Suspect]
     Indication: CREST SYNDROME
     Dosage: 1 MG 2/D PO
     Route: 048
     Dates: start: 20020101

REACTIONS (2)
  - DRUG INTERACTION [None]
  - NEUTROPENIA [None]
